FAERS Safety Report 7129227-5 (Version None)
Quarter: 2010Q4

REPORT INFORMATION
  Report Type: 
  Country: None (occurrence: None)
  Receive Date: 20101130
  Receipt Date: 20101124
  Transmission Date: 20110411
  Serious: Yes (Life-Threatening)
  Sender: FDA-Public Use
  Company Number: FR-ASTRAZENECA-2010SE55932

PATIENT
  Age: 26603 Day
  Sex: Male

DRUGS (3)
  1. ZOLTUM [Suspect]
     Route: 048
     Dates: end: 20101001
  2. AVANDAMET [Suspect]
     Route: 048
     Dates: end: 20101006
  3. CHONDROSULF [Suspect]
     Route: 048
     Dates: end: 20101001

REACTIONS (3)
  - ACUTE CORONARY SYNDROME [None]
  - MYOCARDIAL INFARCTION [None]
  - TROPONIN INCREASED [None]
